FAERS Safety Report 14945429 (Version 3)
Quarter: 2018Q3

REPORT INFORMATION
  Report Type: Spontaneous
  Country: CH (occurrence: CH)
  Receive Date: 20180529
  Receipt Date: 20180924
  Transmission Date: 20181010
  Serious: Yes (Other)
  Sender: FDA-Public Use
  Company Number: CH-ROCHE-2129459

PATIENT
  Sex: Female

DRUGS (7)
  1. MABTHERA [Suspect]
     Active Substance: RITUXIMAB
     Route: 042
     Dates: start: 201602, end: 201802
  2. MABTHERA [Suspect]
     Active Substance: RITUXIMAB
     Indication: B-CELL LYMPHOMA
     Route: 042
     Dates: start: 2010, end: 2010
  3. HYDROXYDAUNORUBICIN [Concomitant]
     Active Substance: DOXORUBICIN
     Indication: B-CELL LYMPHOMA
     Route: 065
     Dates: start: 2010, end: 2010
  4. ONCOVIN [Concomitant]
     Active Substance: VINCRISTINE SULFATE
     Indication: B-CELL LYMPHOMA
     Route: 065
     Dates: start: 2010, end: 2010
  5. CYCLOPHOSPHAMIDE. [Concomitant]
     Active Substance: CYCLOPHOSPHAMIDE
     Indication: B-CELL LYMPHOMA
     Route: 065
     Dates: start: 2010, end: 2010
  6. PREDNISONE. [Concomitant]
     Active Substance: PREDNISONE
     Indication: B-CELL LYMPHOMA
     Route: 065
     Dates: start: 2010, end: 2010
  7. MABTHERA [Suspect]
     Active Substance: RITUXIMAB
     Route: 042
     Dates: start: 2015, end: 2015

REACTIONS (3)
  - B-cell lymphoma [Recovered/Resolved]
  - B-cell lymphoma recurrent [Recovered/Resolved]
  - Drug ineffective [Unknown]

NARRATIVE: CASE EVENT DATE: 2015
